FAERS Safety Report 16716393 (Version 1)
Quarter: 2019Q3

REPORT INFORMATION
  Report Type: Spontaneous
  Country: GR (occurrence: GR)
  Receive Date: 20190819
  Receipt Date: 20190819
  Transmission Date: 20191005
  Serious: Yes (Death, Life-Threatening, Hospitalization, Other)
  Sender: FDA-Public Use
  Company Number: GR-JNJFOC-20190605912

PATIENT
  Age: 26 Year
  Sex: Female
  Weight: 80 kg

DRUGS (5)
  1. FILICINE [Concomitant]
     Indication: CROHN^S DISEASE
     Route: 048
     Dates: start: 20100101, end: 20190527
  2. AZATHIOPRINE. [Concomitant]
     Active Substance: AZATHIOPRINE
     Indication: CROHN^S DISEASE
     Route: 048
     Dates: start: 20100101, end: 20190527
  3. PREZOLON [Concomitant]
     Active Substance: PREDNISOLONE
     Indication: CROHN^S DISEASE
     Route: 048
     Dates: start: 20190430, end: 20190527
  4. MESALAMINE. [Concomitant]
     Active Substance: MESALAMINE
     Indication: CROHN^S DISEASE
     Route: 048
     Dates: start: 20100101, end: 20190527
  5. REMICADE [Suspect]
     Active Substance: INFLIXIMAB
     Indication: CROHN^S DISEASE
     Route: 042
     Dates: start: 20190527

REACTIONS (4)
  - Death [Fatal]
  - Foetal death [Unknown]
  - Exposure during pregnancy [Recovered/Resolved]
  - Haemorrhagic stroke [Recovering/Resolving]

NARRATIVE: CASE EVENT DATE: 20190527
